FAERS Safety Report 7459231-9 (Version None)
Quarter: 2011Q2

REPORT INFORMATION
  Report Type: 
  Country: None (occurrence: None)
  Receive Date: 20110505
  Receipt Date: 20110420
  Transmission Date: 20111010
  Serious: Yes (Hospitalization)
  Sender: FDA-Public Use
  Company Number: FR-JNJFOC-20110410551

PATIENT
  Sex: Female

DRUGS (5)
  1. LOXAPINE HCL [Suspect]
     Indication: SCHIZOPHRENIA
     Route: 048
  2. LEPTICUR [Concomitant]
     Indication: SCHIZOPHRENIA
     Route: 048
  3. RIVOTRIL [Suspect]
     Indication: SCHIZOPHRENIA
     Route: 048
  4. RISPERDAL [Suspect]
     Indication: SCHIZOPHRENIA
     Route: 048
  5. TERCIAN [Suspect]
     Indication: SCHIZOPHRENIA
     Route: 048

REACTIONS (3)
  - SINUS TACHYCARDIA [None]
  - ABNORMAL BEHAVIOUR [None]
  - RESPIRATORY DEPRESSION [None]
